FAERS Safety Report 17056611 (Version 1)
Quarter: 2019Q4

REPORT INFORMATION
  Report Type: Spontaneous
  Country: US (occurrence: US)
  Receive Date: 20191121
  Receipt Date: 20191121
  Transmission Date: 20200122
  Serious: Yes (Other)
  Sender: FDA-Public Use
  Company Number: US-ROCHE-2470759

PATIENT
  Age: 72 Year
  Sex: Female
  Weight: 68.1 kg

DRUGS (2)
  1. DOXORUBICIN [Concomitant]
     Active Substance: DOXORUBICIN
     Indication: OVARIAN CANCER
     Route: 065
     Dates: start: 201903, end: 201905
  2. AVASTIN [Suspect]
     Active Substance: BEVACIZUMAB
     Indication: OVARIAN CANCER
     Route: 065
     Dates: start: 20190301

REACTIONS (4)
  - Renal failure [Not Recovered/Not Resolved]
  - Pleural effusion [Not Recovered/Not Resolved]
  - Oedema peripheral [Not Recovered/Not Resolved]
  - Hypertension [Not Recovered/Not Resolved]

NARRATIVE: CASE EVENT DATE: 201903
